FAERS Safety Report 20076004 (Version 1)
Quarter: 2021Q4

REPORT INFORMATION
  Report Type: Spontaneous
  Country: US (occurrence: US)
  Receive Date: 20211116
  Receipt Date: 20211116
  Transmission Date: 20220303
  Serious: No
  Sender: FDA-Public Use
  Company Number: US-NOVOPROD-774267

PATIENT
  Sex: Female

DRUGS (5)
  1. TRESIBA [Suspect]
     Active Substance: INSULIN DEGLUDEC
     Dosage: INCREASED DOSE
     Route: 058
  2. TRESIBA [Suspect]
     Active Substance: INSULIN DEGLUDEC
     Indication: Congenital generalised lipodystrophy
     Dosage: UNK
     Route: 058
  3. ACARBOSE [Concomitant]
     Active Substance: ACARBOSE
     Indication: Congenital generalised lipodystrophy
     Dosage: 50 TID
     Route: 065
  4. JANUMET [Concomitant]
     Active Substance: METFORMIN HYDROCHLORIDE\SITAGLIPTIN PHOSPHATE
     Indication: Product used for unknown indication
     Dosage: 50/1000 MG BID
     Route: 065
  5. ACTOS [Concomitant]
     Active Substance: PIOGLITAZONE HYDROCHLORIDE
     Indication: Congenital generalised lipodystrophy
     Dosage: UNK
     Route: 065

REACTIONS (3)
  - Anxiety [Unknown]
  - Blood glucose increased [Not Recovered/Not Resolved]
  - Drug ineffective [Not Recovered/Not Resolved]
